FAERS Safety Report 19984073 (Version 1)
Quarter: 2021Q4

REPORT INFORMATION
  Report Type: Spontaneous
  Country: NL (occurrence: FR)
  Receive Date: 20211021
  Receipt Date: 20211021
  Transmission Date: 20220304
  Serious: Yes (Life-Threatening)
  Sender: FDA-Public Use
  Company Number: None

PATIENT
  Age: 50 Year
  Sex: Female

DRUGS (3)
  1. ROPIVACAINE [Suspect]
     Active Substance: ROPIVACAINE
     Indication: Anaesthesia
     Dosage: ANHYDROUS ROPIVACAINE HYDROCHLORIDE
     Route: 058
     Dates: start: 20210224, end: 20210224
  2. PATENT BLUE V [Suspect]
     Active Substance: PATENT BLUE V
     Indication: Cancer surgery
     Dosage: PATENT BLUE V
     Route: 063
     Dates: start: 20210224, end: 20210224
  3. ATRACURIUM BESYLATE [Suspect]
     Active Substance: ATRACURIUM BESYLATE
     Indication: Anaesthesia
     Route: 042
     Dates: start: 20210224, end: 20210224

REACTIONS (1)
  - Anaphylactic shock [Recovered/Resolved]

NARRATIVE: CASE EVENT DATE: 20210224
